FAERS Safety Report 4324874-8 (Version None)
Quarter: 2004Q1

REPORT INFORMATION
  Report Type: 
  Country: None (occurrence: None)
  Receive Date: 20040326
  Receipt Date: 20040317
  Transmission Date: 20041129
  Serious: Yes (Life-Threatening, Hospitalization, Other)
  Sender: FDA-Public Use
  Company Number: PHRM2004FR01277

PATIENT
  Age: 84 Year
  Sex: Female
  Weight: 68 kg

DRUGS (6)
  1. TAREG [Suspect]
     Indication: HYPERTENSION
     Dosage: 40 MG, QD
     Route: 048
     Dates: start: 20040305, end: 20040314
  2. LEXOMIL [Concomitant]
     Indication: DEPRESSION
     Dosage: 1.5 MG, QD
     Route: 048
     Dates: start: 20010101
  3. PROZAC [Concomitant]
     Indication: DEPRESSION
     Dosage: 1 DF, QD
     Route: 048
     Dates: start: 20010101
  4. PREVISCAN [Concomitant]
     Indication: PULMONARY EMBOLISM
     Dosage: .5 DF, QD
     Route: 048
     Dates: start: 20030901, end: 20040314
  5. LASIX [Concomitant]
     Dosage: 20 MG, QD
     Route: 048
     Dates: start: 20030901, end: 20040313
  6. SECALIP [Concomitant]
     Indication: HYPERCHOLESTEROLAEMIA

REACTIONS (7)
  - CRYPTOGENIC ORGANIZING PNEUMONIA [None]
  - DYSPNOEA EXACERBATED [None]
  - HYPOXIA [None]
  - LEFT VENTRICULAR FAILURE [None]
  - PROTHROMBIN TIME PROLONGED [None]
  - PULMONARY ALVEOLAR HAEMORRHAGE [None]
  - PULMONARY FIBROSIS [None]
